FAERS Safety Report 10433039 (Version 4)
Quarter: 2017Q1

REPORT INFORMATION
  Report Type: Spontaneous
  Country: US (occurrence: US)
  Receive Date: 20140905
  Receipt Date: 20170324
  Transmission Date: 20170428
  Serious: Yes (Hospitalization, Other)
  Sender: FDA-Public Use
  Company Number: US-ELI_LILLY_AND_COMPANY-US201408010119

PATIENT
  Sex: Male

DRUGS (3)
  1. CYMBALTA [Suspect]
     Active Substance: DULOXETINE HYDROCHLORIDE
     Indication: DEPRESSION
  2. CYMBALTA [Suspect]
     Active Substance: DULOXETINE HYDROCHLORIDE
     Indication: ANXIETY
     Dosage: UNK, UNKNOWN
     Route: 048
     Dates: start: 200901, end: 201302
  3. CYMBALTA [Suspect]
     Active Substance: DULOXETINE HYDROCHLORIDE
     Indication: PAIN

REACTIONS (20)
  - Anxiety [Unknown]
  - Dizziness [Unknown]
  - Fear of death [Unknown]
  - Dysphoria [Unknown]
  - Agitation [Unknown]
  - Anger [Unknown]
  - Diarrhoea [Unknown]
  - Irritability [Unknown]
  - Sensory disturbance [Unknown]
  - Affect lability [Unknown]
  - Nausea [Unknown]
  - Mood swings [Unknown]
  - Vertigo [Unknown]
  - Sleep disorder [Unknown]
  - Insomnia [Unknown]
  - Sexual dysfunction [Unknown]
  - Confusional state [Unknown]
  - Paraesthesia [Unknown]
  - Lethargy [Unknown]
  - Drug withdrawal syndrome [Not Recovered/Not Resolved]
